FAERS Safety Report 11432936 (Version 1)
Quarter: 2015Q3

REPORT INFORMATION
  Report Type: Report from Study
  Country: HU (occurrence: HU)
  Receive Date: 20150828
  Receipt Date: 20150828
  Transmission Date: 20151125
  Serious: Yes (Death)
  Sender: FDA-Public Use
  Company Number: HU-ABBVIE-15K-076-1452196-00

PATIENT
  Age: 70 Year
  Sex: Male

DRUGS (4)
  1. ARCOXIA [Concomitant]
     Active Substance: ETORICOXIB
     Indication: PRODUCT USED FOR UNKNOWN INDICATION
     Route: 048
  2. FOLIC ACID. [Concomitant]
     Active Substance: FOLIC ACID
     Indication: PRODUCT USED FOR UNKNOWN INDICATION
  3. TREXAN [Concomitant]
     Active Substance: METHOTREXATE SODIUM
     Indication: PRODUCT USED FOR UNKNOWN INDICATION
     Route: 048
  4. HUMIRA [Suspect]
     Active Substance: ADALIMUMAB
     Indication: RHEUMATOID ARTHRITIS
     Route: 058
     Dates: start: 20140704

REACTIONS (14)
  - Hydrothorax [Fatal]
  - Peripheral swelling [Fatal]
  - Dizziness [Fatal]
  - Hypoglycaemia [Fatal]
  - Malaise [Fatal]
  - Dehydration [Fatal]
  - Atrial fibrillation [Fatal]
  - Cardiovascular disorder [Fatal]
  - Hepatic cancer [Fatal]
  - Nausea [Fatal]
  - Asthenia [Fatal]
  - Pyelonephritis acute [Fatal]
  - Hepatic mass [Fatal]
  - Abdominal pain [Fatal]

NARRATIVE: CASE EVENT DATE: 201506
